FAERS Safety Report 8586484 (Version 2)
Quarter: 2013Q2

REPORT INFORMATION
  Report Type: Spontaneous
  Country: US (occurrence: US)
  Receive Date: 20120530
  Receipt Date: 20130613
  Transmission Date: 20140414
  Serious: Yes (Congenital Anomaly)
  Sender: FDA-Public Use
  Company Number: US-GLAXOSMITHKLINE-A0979131A

PATIENT
  Age: 0 Year
  Sex: Female

DRUGS (10)
  1. PAXIL [Suspect]
     Indication: ANXIETY
     Dosage: 40MG UNKNOWN
     Route: 064
  2. PROVENAL [Concomitant]
  3. PRENATAL VITAMINS [Concomitant]
  4. METHADONE [Concomitant]
     Dosage: 90MG PER DAY
  5. ROXICODONE [Concomitant]
  6. PULMICORT [Concomitant]
  7. BACTRIM [Concomitant]
  8. PREDNISONE [Concomitant]
  9. PROVENTIL [Concomitant]
  10. PEPCID [Concomitant]

REACTIONS (5)
  - Cleft palate [Unknown]
  - Cor pulmonale [Unknown]
  - Pulmonary arterial hypertension [Unknown]
  - Right ventricular hypertrophy [Unknown]
  - Foetal exposure during pregnancy [Unknown]
